FAERS Safety Report 9362116 (Version 2)
Quarter: 2013Q3

REPORT INFORMATION
  Report Type: Report from Study
  Country: US (occurrence: US)
  Receive Date: 20130621
  Receipt Date: 20130708
  Transmission Date: 20140515
  Serious: Yes (Hospitalization)
  Sender: FDA-Public Use
  Company Number: US-US-EMD SERONO, INC.-7209080

PATIENT
  Age: 38 Year
  Sex: Female

DRUGS (2)
  1. REBIF [Suspect]
     Indication: MULTIPLE SCLEROSIS
     Route: 058
     Dates: start: 20121007
  2. REBIF [Suspect]
     Route: 058
     Dates: start: 20130614, end: 20130621

REACTIONS (6)
  - Staphylococcal infection [Not Recovered/Not Resolved]
  - Pneumonia [Unknown]
  - Multiple sclerosis relapse [Recovering/Resolving]
  - Arthralgia [Unknown]
  - Injection site pain [Not Recovered/Not Resolved]
  - Injection site bruising [Not Recovered/Not Resolved]
